FAERS Safety Report 5218586-6 (Version None)
Quarter: 2007Q1

REPORT INFORMATION
  Report Type: 
  Country: None (occurrence: None)
  Receive Date: 20061130
  Receipt Date: 20060814
  Transmission Date: 20070707
  Serious: Yes (Hospitalization)
  Sender: FDA-Public Use
  Company Number: US200606000626

PATIENT
  Sex: Male
  Weight: 102 kg

DRUGS (4)
  1. ZYPREXA [Suspect]
     Dosage: 10 MG
     Dates: start: 19990101, end: 20050101
  2. LITHIUM CARBONATE [Concomitant]
  3. ZOLOFT [Concomitant]
  4. EFFEXOR [Concomitant]

REACTIONS (3)
  - BLOOD GLUCOSE INCREASED [None]
  - DIABETES MELLITUS [None]
  - VISION BLURRED [None]
